FAERS Safety Report 19195404 (Version 1)
Quarter: 2021Q2

REPORT INFORMATION
  Report Type: Report from Study
  Country: GB (occurrence: GB)
  Receive Date: 20210429
  Receipt Date: 20210429
  Transmission Date: 20210717
  Serious: Yes (Other)
  Sender: FDA-Public Use
  Company Number: GB-ACCORD-223524

PATIENT
  Age: 56 Year
  Sex: Female

DRUGS (2)
  1. AMITRIPTYLINE [Suspect]
     Active Substance: AMITRIPTYLINE
     Indication: POOR QUALITY SLEEP
     Route: 065
  2. IMRALDI [Suspect]
     Active Substance: ADALIMUMAB
     Indication: PSORIATIC ARTHROPATHY
     Route: 058
     Dates: start: 20191009

REACTIONS (4)
  - Poor quality sleep [Unknown]
  - Femoral hernia [Not Recovered/Not Resolved]
  - Psoriatic arthropathy [Unknown]
  - Dizziness [Unknown]
